FAERS Safety Report 9478028 (Version 1)
Quarter: 2013Q3

REPORT INFORMATION
  Report Type: Report from Study
  Country: BR (occurrence: BR)
  Receive Date: 20130827
  Receipt Date: 20130827
  Transmission Date: 20140515
  Serious: Yes (Other)
  Sender: FDA-Public Use
  Company Number: PHHY2013BR092302

PATIENT
  Sex: Male

DRUGS (3)
  1. RITALIN LA [Suspect]
     Indication: ATTENTION DEFICIT/HYPERACTIVITY DISORDER
     Dosage: 10 MG, 1 TABLET A DAY
     Route: 048
     Dates: start: 201306
  2. TOLREST [Concomitant]
     Indication: OBSESSIVE-COMPULSIVE DISORDER
     Dosage: 25 MG, 1 TABLET A DAY
     Route: 048
  3. NEULEPTIL [Concomitant]
     Indication: ANXIETY
     Dosage: 1 MG, 1 TABLET AT NIGHT
     Route: 048

REACTIONS (6)
  - Obsessive-compulsive disorder [Not Recovered/Not Resolved]
  - Head titubation [Not Recovered/Not Resolved]
  - Eye disorder [Not Recovered/Not Resolved]
  - Excessive eye blinking [Not Recovered/Not Resolved]
  - Impaired healing [Recovering/Resolving]
  - Therapeutic response unexpected [Unknown]
